FAERS Safety Report 10362980 (Version 1)
Quarter: 2014Q1

REPORT INFORMATION
  Report Type: Spontaneous
  Country: US (occurrence: None)
  Receive Date: 20140306
  Receipt Date: 20140306
  Transmission Date: 20141002
  Serious: Yes (Other)
  Sender: FDA-Public Use
  Company Number: 163-21880-13022063

PATIENT
  Age: 69 Year
  Sex: Female
  Weight: 89.81 kg

DRUGS (8)
  1. REVLIMID (LENALIDOMIDE) (CAPSULES) [Suspect]
     Indication: PLASMA CELL MYELOMA
     Route: 048
     Dates: start: 20100501
  2. FUROSEMIDE [Concomitant]
  3. GABAPENTIN [Concomitant]
  4. OMEPRAZOLE [Concomitant]
  5. OXYCONTIN (OXYCODONE HYDROCHLORIDE) [Concomitant]
  6. PREDNISONE [Concomitant]
  7. VITAMIN D (ERGOCALCIFEROL) [Concomitant]
  8. WARFARIN [Concomitant]

REACTIONS (1)
  - Pulmonary embolism [None]
